FAERS Safety Report 17686369 (Version 2)
Quarter: 2020Q2

REPORT INFORMATION
  Report Type: Report from Study
  Country: IN (occurrence: IN)
  Receive Date: 20200420
  Receipt Date: 20200504
  Transmission Date: 20200714
  Serious: Yes (Other)
  Sender: FDA-Public Use
  Company Number: NVSC2020IN090266

PATIENT
  Age: 56 Year
  Sex: Male
  Weight: 93 kg

DRUGS (5)
  1. NOVOMIX [Concomitant]
     Active Substance: INSULIN ASPART
     Indication: DIABETES MELLITUS
     Dosage: 1 DF, BID (10-0-6U,PRE MEAL) (SINCE 3 MONTHS)
     Route: 058
  2. GALVUS MET [Suspect]
     Active Substance: METFORMIN HYDROCHLORIDE\VILDAGLIPTIN
     Indication: DIABETES MELLITUS
     Dosage: 1 DF, QD (SINCE 3 YEARS)
     Route: 048
  3. NOVOMIX [Concomitant]
     Active Substance: INSULIN ASPART
     Dosage: 1 DF, BID (8-0-8 U)
     Route: 058
  4. XIGDUO XR [Concomitant]
     Active Substance: DAPAGLIFLOZIN PROPANEDIOL\METFORMIN HYDROCHLORIDE
     Indication: DIABETES MELLITUS
     Dosage: 1 DF (10/1000), QD (1-0-0,POST MEAL)
     Route: 048
  5. AZULIX [Concomitant]
     Indication: DIABETES MELLITUS
     Dosage: 1 DF, BID (1-0-1,PRE MEAL)
     Route: 048

REACTIONS (3)
  - Pain in extremity [Unknown]
  - Weight decreased [Unknown]
  - Hyperglycaemia [Unknown]

NARRATIVE: CASE EVENT DATE: 20200103
